FAERS Safety Report 4852369-1 (Version None)
Quarter: 2005Q4

REPORT INFORMATION
  Report Type: 
  Country: None (occurrence: None)
  Receive Date: 20051213
  Receipt Date: 20051201
  Transmission Date: 20060501
  Serious: Yes (Hospitalization)
  Sender: FDA-Public Use
  Company Number: US-JNJFOC-20051200964

PATIENT
  Sex: Female
  Weight: 83.92 kg

DRUGS (4)
  1. FENTANYL [Suspect]
     Route: 062
  2. FLEXERIL [Suspect]
     Route: 048
  3. VALIUM [Suspect]
     Route: 048
     Dates: start: 20050915, end: 20050920
  4. INSULIN [Concomitant]
     Route: 058

REACTIONS (1)
  - AMNESIA [None]
